FAERS Safety Report 5918888-1 (Version None)
Quarter: 2008Q3

REPORT INFORMATION
  Report Type: 
  Country: None (occurrence: None)
  Receive Date: 20080909
  Receipt Date: 20071016
  Transmission Date: 20090109
  Serious: Yes (Hospitalization)
  Sender: FDA-Public Use
  Company Number: 163-20785-07080644

PATIENT
  Age: 63 Year
  Sex: Male

DRUGS (5)
  1. THALOMID [Suspect]
     Indication: MULTIPLE MYELOMA
     Dosage: 100 MG, 1 IN 1 D, ORAL ; 200 MG, DAILY, ORAL
     Route: 048
     Dates: start: 20041203, end: 20050101
  2. THALOMID [Suspect]
     Indication: MULTIPLE MYELOMA
     Dosage: 100 MG, 1 IN 1 D, ORAL ; 200 MG, DAILY, ORAL
     Route: 048
     Dates: start: 20070307, end: 20070101
  3. ALDACTAZIDE (ALDACTAZIDE A) [Concomitant]
  4. VERAPAMIL [Concomitant]
  5. METOPROLOL TARTRATE [Concomitant]

REACTIONS (8)
  - ANOREXIA [None]
  - ASTHENIA [None]
  - HEPATIC ENZYME INCREASED [None]
  - NAUSEA [None]
  - NEUROPATHY PERIPHERAL [None]
  - PRURITUS [None]
  - RENAL FAILURE ACUTE [None]
  - VOMITING [None]
